FAERS Safety Report 7984055-3 (Version None)
Quarter: 2011Q4

REPORT INFORMATION
  Report Type: 
  Country: None (occurrence: None)
  Receive Date: 20111216
  Receipt Date: 20111209
  Transmission Date: 20120403
  Serious: Yes (Life-Threatening, Hospitalization, Other)
  Sender: FDA-Public Use
  Company Number: DE-PFIZER INC-K201101054

PATIENT
  Age: 67 Year
  Sex: Female

DRUGS (3)
  1. RAMIPRIL [Suspect]
     Dosage: 2.5 MG, 2X/DAY
     Route: 048
     Dates: start: 20110803
  2. RAMIPRIL [Suspect]
     Dosage: 2.5 MG, 2X/DAY
     Route: 048
     Dates: start: 20101101, end: 20110802
  3. RAMIPRIL [Suspect]
     Dosage: 2.5 MG, 1X/DAY
     Route: 048
     Dates: start: 19980101, end: 20101101

REACTIONS (8)
  - ATRIAL FIBRILLATION [None]
  - GLOMERULAR FILTRATION RATE DECREASED [None]
  - CARDIAC FAILURE [None]
  - HYPOTENSION [None]
  - BLOOD UREA INCREASED [None]
  - RENAL FAILURE ACUTE [None]
  - ATRIAL TACHYCARDIA [None]
  - BLOOD CREATININE INCREASED [None]
